FAERS Safety Report 9506923 (Version 1)
Quarter: 2013Q3

REPORT INFORMATION
  Report Type: Spontaneous
  Country: US (occurrence: None)
  Receive Date: 20130905
  Receipt Date: 20130905
  Transmission Date: 20140515
  Serious: Yes (Hospitalization, Other)
  Sender: FDA-Public Use
  Company Number: None

PATIENT
  Age: 83 Year
  Sex: Female
  Weight: 86.4 kg

DRUGS (14)
  1. REMICADE [Suspect]
     Indication: RHEUMATOID ARTHRITIS
     Route: 042
     Dates: start: 2010, end: 2012
  2. ASPIRIN [Concomitant]
  3. ASTELIN [Concomitant]
  4. ATENOLO [Concomitant]
  5. CITRACALD [Concomitant]
  6. DIOVAN [Concomitant]
  7. FOLIC ACID [Concomitant]
  8. IBUPROFEN [Concomitant]
  9. IMDUR [Concomitant]
  10. LIPITOR [Concomitant]
  11. LYSINE [Concomitant]
  12. MAGNESIUM [Concomitant]
  13. MOMETASONE [Concomitant]
  14. MVI [Concomitant]

REACTIONS (1)
  - Squamous cell carcinoma [None]
